FAERS Safety Report 14934641 (Version 3)
Quarter: 2018Q2

REPORT INFORMATION
  Report Type: Spontaneous
  Country: SE (occurrence: SE)
  Receive Date: 20180524
  Receipt Date: 20180622
  Transmission Date: 20180711
  Serious: Yes (Other)
  Sender: FDA-Public Use
  Company Number: SE-BRACCO-2018SE02733

PATIENT
  Age: 34 Year
  Sex: Female

DRUGS (4)
  1. SONOVUE [Suspect]
     Active Substance: SULFUR HEXAFLUORIDE
     Indication: ULTRASOUND LIVER
     Dosage: 2 ML, SINGLE, AT SPEED 8 MICROLITER/ML
     Route: 042
     Dates: start: 20180425, end: 20180425
  2. SONOVUE [Suspect]
     Active Substance: SULFUR HEXAFLUORIDE
     Route: 042
  3. ESOMEPRAZOL                        /01479301/ [Concomitant]
     Active Substance: ESOMEPRAZOLE
     Indication: ABDOMINAL DISCOMFORT
  4. DIKLOFENAK                         /00372301/ [Concomitant]
     Indication: ABDOMINAL DISCOMFORT

REACTIONS (1)
  - Drug effect prolonged [Recovered/Resolved]

NARRATIVE: CASE EVENT DATE: 20180425
